FAERS Safety Report 10480854 (Version 2)
Quarter: 2014Q4

REPORT INFORMATION
  Report Type: Spontaneous
  Country: US (occurrence: US)
  Receive Date: 20140929
  Receipt Date: 20141031
  Transmission Date: 20150528
  Serious: No
  Sender: FDA-Public Use
  Company Number: US-BAYER-2014-142341

PATIENT
  Age: 31 Year
  Sex: Female
  Weight: 77 kg

DRUGS (3)
  1. FLINTSTONES GUMMIES [Suspect]
     Active Substance: VITAMINS
     Dosage: ABOUT 1 UNIT PER WEEK
     Route: 048
  2. ENOXAPARIN SODIUM. [Interacting]
     Active Substance: ENOXAPARIN SODIUM
     Dosage: UNK
  3. BAYER LOW DOSE [Suspect]
     Active Substance: ASPIRIN
     Indication: THROMBOSIS PROPHYLAXIS
     Dosage: 1 UNIT
     Route: 048
     Dates: start: 2010

REACTIONS (11)
  - Dyspepsia [None]
  - Product use issue [None]
  - Muscle spasms [Recovered/Resolved]
  - Urine analysis abnormal [Unknown]
  - Maternal exposure during pregnancy [None]
  - Labelled drug-drug interaction medication error [None]
  - Haemorrhoidal haemorrhage [Recovered/Resolved]
  - Dehydration [Unknown]
  - Vomiting in pregnancy [Not Recovered/Not Resolved]
  - Diarrhoea [Recovered/Resolved]
  - Nausea [Not Recovered/Not Resolved]

NARRATIVE: CASE EVENT DATE: 2010
